FAERS Safety Report 5094829-7 (Version None)
Quarter: 2006Q3

REPORT INFORMATION
  Report Type: 
  Country: None (occurrence: None)
  Receive Date: 20060830
  Receipt Date: 20060830
  Transmission Date: 20061208
  Serious: No
  Sender: FDA-Public Use
  Company Number: None

PATIENT
  Age: 51 Year
  Sex: Male

DRUGS (4)
  1. DIAZEPAM [Suspect]
     Indication: PANIC DISORDER
     Dosage: 10MG   3 TIMES DAILY   ORALLY
     Route: 048
     Dates: start: 20060701, end: 20060801
  2. DEXEDRINE [Concomitant]
  3. EFFEXOR XR [Concomitant]
  4. RISPERDAL [Concomitant]

REACTIONS (5)
  - DRUG INEFFECTIVE [None]
  - PHARMACEUTICAL PRODUCT COMPLAINT [None]
  - RASH PRURITIC [None]
  - THERAPEUTIC RESPONSE UNEXPECTED WITH DRUG SUBSTITUTION [None]
  - URTICARIA [None]
